FAERS Safety Report 7482803-2 (Version None)
Quarter: 2011Q2

REPORT INFORMATION
  Report Type: 
  Country: None (occurrence: None)
  Receive Date: 20110516
  Receipt Date: 20110222
  Transmission Date: 20111010
  Serious: No
  Sender: FDA-Public Use
  Company Number: US-BAYER-2011-017320

PATIENT
  Sex: Female

DRUGS (2)
  1. CIPRO [Suspect]
     Dosage: UNK
     Dates: start: 20110101, end: 20110101
  2. CIPRO [Suspect]
     Dosage: UNK
     Dates: start: 20100101, end: 20100101

REACTIONS (1)
  - NO ADVERSE EVENT [None]
